FAERS Safety Report 23752024 (Version 1)
Quarter: 2024Q2

REPORT INFORMATION
  Report Type: Spontaneous
  Country: US (occurrence: US)
  Receive Date: 20240417
  Receipt Date: 20240417
  Transmission Date: 20240716
  Serious: No
  Sender: FDA-Public Use
  Company Number: US-ELI_LILLY_AND_COMPANY-US202404009373

PATIENT
  Age: 72 Year
  Sex: Female

DRUGS (10)
  1. MOUNJARO [Suspect]
     Active Substance: TIRZEPATIDE
     Indication: Product used for unknown indication
     Dosage: 10 MG, UNKNOWN
     Route: 065
  2. MOUNJARO [Suspect]
     Active Substance: TIRZEPATIDE
     Indication: Product used for unknown indication
     Dosage: 10 MG, UNKNOWN
     Route: 065
  3. MOUNJARO [Suspect]
     Active Substance: TIRZEPATIDE
     Indication: Product used for unknown indication
     Dosage: 10 MG, UNKNOWN
     Route: 065
  4. MOUNJARO [Suspect]
     Active Substance: TIRZEPATIDE
     Indication: Product used for unknown indication
     Dosage: 10 MG, UNKNOWN
     Route: 065
  5. MOUNJARO [Suspect]
     Active Substance: TIRZEPATIDE
     Indication: Product used for unknown indication
     Dosage: 10 MG, UNKNOWN
     Route: 065
  6. MOUNJARO [Suspect]
     Active Substance: TIRZEPATIDE
     Dosage: 10 MG, UNKNOWN
     Route: 065
  7. MOUNJARO [Suspect]
     Active Substance: TIRZEPATIDE
     Dosage: 10 MG, UNKNOWN
     Route: 065
  8. MOUNJARO [Suspect]
     Active Substance: TIRZEPATIDE
     Dosage: 10 MG, UNKNOWN
     Route: 065
  9. MOUNJARO [Suspect]
     Active Substance: TIRZEPATIDE
     Dosage: 10 MG, UNKNOWN
     Route: 065
  10. MOUNJARO [Suspect]
     Active Substance: TIRZEPATIDE
     Dosage: 10 MG, UNKNOWN
     Route: 065

REACTIONS (2)
  - Accidental overdose [Unknown]
  - Blood glucose increased [Unknown]

NARRATIVE: CASE EVENT DATE: 20240412
